FAERS Safety Report 11103428 (Version 4)
Quarter: 2015Q4

REPORT INFORMATION
  Report Type: Other
  Country: US (occurrence: US)
  Receive Date: 20150511
  Receipt Date: 20151001
  Transmission Date: 20160304
  Serious: Yes (Hospitalization, Other)
  Sender: FDA-Public Use
  Company Number: US-ACORDA-ACO_111232_2015

PATIENT
  Age: 62 Year
  Sex: Female
  Weight: 69.39 kg

DRUGS (1)
  1. AMPYRA [Suspect]
     Active Substance: DALFAMPRIDINE
     Indication: GAIT DISTURBANCE
     Dosage: 10 MG, Q 12 HRS
     Route: 048
     Dates: start: 20140531

REACTIONS (8)
  - Cerebral haematoma [Unknown]
  - Decreased appetite [Unknown]
  - Arthralgia [Recovered/Resolved]
  - Concussion [Unknown]
  - Weight decreased [Unknown]
  - Fall [Unknown]
  - Motor dysfunction [Unknown]
  - Patella fracture [Not Recovered/Not Resolved]

NARRATIVE: CASE EVENT DATE: 20150217
